FAERS Safety Report 9921940 (Version 1)
Quarter: 2014Q1

REPORT INFORMATION
  Report Type: Spontaneous
  Country: CZ (occurrence: CZ)
  Receive Date: 20140225
  Receipt Date: 20140225
  Transmission Date: 20141002
  Serious: Yes (Death, Hospitalization)
  Sender: FDA-Public Use
  Company Number: PHHY2014CZ018414

PATIENT
  Age: 61 Year
  Sex: Female

DRUGS (3)
  1. TEMOZOLOMIDE [Suspect]
     Dosage: 75 MG/M2/DAY
  2. CO-TRIMOXAZOLE [Suspect]
     Indication: ANTIFUNGAL PROPHYLAXIS
  3. CITALOPRAM [Concomitant]
     Dosage: 20 MG/DAY

REACTIONS (13)
  - Myeloid maturation arrest [Unknown]
  - Thrombocytopenia [Unknown]
  - Platelet count decreased [Unknown]
  - Haemorrhagic diathesis [Unknown]
  - Petechiae [Unknown]
  - Leukopenia [Unknown]
  - Bone marrow failure [Unknown]
  - Sepsis [Fatal]
  - Pyrexia [Fatal]
  - Lymphocyte count increased [Unknown]
  - Natural killer T cell count decreased [Unknown]
  - Aplastic anaemia [Unknown]
  - Erythroid maturation arrest [Unknown]
